FAERS Safety Report 9509970 (Version 1)
Quarter: 2013Q3

REPORT INFORMATION
  Report Type: Spontaneous
  Country: US (occurrence: US)
  Receive Date: 20130909
  Receipt Date: 20130909
  Transmission Date: 20140515
  Serious: No
  Sender: FDA-Public Use
  Company Number: US-BRISTOL-MYERS SQUIBB COMPANY-18777631

PATIENT
  Age: 7 Decade
  Sex: Female

DRUGS (4)
  1. ABILIFY [Suspect]
     Dosage: STARTED 3 WEEKS AGO
  2. CYMBALTA [Concomitant]
  3. GABAPENTIN [Concomitant]
  4. MORPHINE [Concomitant]
     Indication: PAIN

REACTIONS (1)
  - Abnormal dreams [Not Recovered/Not Resolved]
